FAERS Safety Report 7448141-9 (Version None)
Quarter: 2011Q2

REPORT INFORMATION
  Report Type: 
  Country: None (occurrence: None)
  Receive Date: 20110429
  Receipt Date: 20100309
  Transmission Date: 20111010
  Serious: No
  Sender: FDA-Public Use
  Company Number: US-ASTRAZENECA-2008UW11998

PATIENT
  Age: 70 Year
  Sex: Female
  Weight: 63.5 kg

DRUGS (8)
  1. NEXIUM [Suspect]
     Route: 048
  2. ZOMETA [Concomitant]
  3. VITAMINS [Concomitant]
  4. NEXIUM [Suspect]
     Indication: GASTROOESOPHAGEAL REFLUX DISEASE
     Route: 048
  5. MIRALAX [Concomitant]
  6. EVISTA [Concomitant]
  7. CITRUCEL [Concomitant]
  8. NEXIUM [Suspect]
     Route: 048

REACTIONS (7)
  - OROPHARYNGEAL PAIN [None]
  - COUGH [None]
  - INCORRECT DOSE ADMINISTERED [None]
  - DRUG INEFFECTIVE [None]
  - DRY MOUTH [None]
  - THERAPEUTIC RESPONSE UNEXPECTED [None]
  - NASAL SEPTUM DEVIATION [None]
